FAERS Safety Report 5610245-0 (Version None)
Quarter: 2008Q1

REPORT INFORMATION
  Report Type: 
  Country: None (occurrence: None)
  Receive Date: 20080131
  Receipt Date: 20080123
  Transmission Date: 20080703
  Serious: Yes (Hospitalization)
  Sender: FDA-Public Use
  Company Number: TW-ABBOTT-08P-153-0434860-00

PATIENT
  Age: 32 Year
  Sex: Female

DRUGS (2)
  1. SIBUTRAMINE [Suspect]
     Indication: OVERWEIGHT
  2. LORAZEPAM [Suspect]
     Indication: INSOMNIA

REACTIONS (2)
  - HYPOGLYCAEMIC COMA [None]
  - OVERDOSE [None]
